FAERS Safety Report 16875389 (Version 2)
Quarter: 2019Q4

REPORT INFORMATION
  Report Type: Spontaneous
  Country: US (occurrence: US)
  Receive Date: 20191002
  Receipt Date: 20191015
  Transmission Date: 20200122
  Serious: No
  Sender: FDA-Public Use
  Company Number: US-AMGEN-USASP2019159001

PATIENT
  Sex: Female

DRUGS (2)
  1. PROLIA [Suspect]
     Active Substance: DENOSUMAB
     Indication: BONE LOSS
     Dosage: UNK
     Route: 065
  2. PRALUENT [Concomitant]
     Active Substance: ALIROCUMAB
     Dosage: 150 MILLIGRAM
     Route: 065

REACTIONS (2)
  - Off label use [Unknown]
  - Myalgia [Unknown]
